FAERS Safety Report 9620860 (Version 1)
Quarter: 2013Q4

REPORT INFORMATION
  Report Type: Spontaneous
  Country: US (occurrence: US)
  Receive Date: 20131015
  Receipt Date: 20131015
  Transmission Date: 20140711
  Serious: Yes (Other)
  Sender: FDA-Public Use
  Company Number: US-BAYER-2013-124270

PATIENT
  Age: 44 Year
  Sex: Female
  Weight: 100.23 kg

DRUGS (5)
  1. YAZ [Suspect]
  2. YASMIN [Suspect]
  3. LEVOTHYROXINE SODIUM [Concomitant]
     Dosage: 100 ?G, DAILY
  4. CEPHALEXIN [Concomitant]
     Dosage: 500 MG, EVERY 8 HOURS
  5. IBUPROFENE [Concomitant]
     Dosage: UNK
     Dates: start: 20070518

REACTIONS (1)
  - Deep vein thrombosis [Recovered/Resolved]
